FAERS Safety Report 6753768-3 (Version None)
Quarter: 2010Q2

REPORT INFORMATION
  Report Type: 
  Country: None (occurrence: None)
  Receive Date: 20100603
  Receipt Date: 20100520
  Transmission Date: 20101027
  Serious: Yes (Other)
  Sender: FDA-Public Use
  Company Number: JP-ROCHE-706810

PATIENT
  Age: 49 Year
  Sex: Female

DRUGS (4)
  1. AVASTIN [Suspect]
     Indication: CHOROIDAL NEOVASCULARISATION
     Route: 031
  2. LIDOCAINE HYDROCHLORIDE/MACROGOL 4000/METHYLPREDNISOLONE [Concomitant]
     Dosage: EXTERNAL PREPARATION
     Route: 047
  3. POVIDONE IODINE [Concomitant]
     Dosage: EXTERNAL PREPARATION
     Route: 047
  4. CRAVIT [Concomitant]
     Dosage: EXTERNAL PREPARATION
     Route: 047

REACTIONS (1)
  - EYE INFLAMMATION [None]
